FAERS Safety Report 4411821-3 (Version None)
Quarter: 2004Q3

REPORT INFORMATION
  Report Type: 
  Country: None (occurrence: None)
  Receive Date: 20040729
  Receipt Date: 20040729
  Transmission Date: 20050211
  Serious: Yes (Death)
  Sender: FDA-Public Use
  Company Number: None

PATIENT
  Age: 66 Year
  Sex: Female
  Weight: 55.3388 kg

DRUGS (7)
  1. CARBOPLATIN [Suspect]
     Indication: NON-SMALL CELL LUNG CANCER
     Dosage: 160 MG X4 WEEKLY IV
     Route: 042
     Dates: start: 20040322, end: 20040426
  2. IRESSA [Suspect]
     Indication: NON-SMALL CELL LUNG CANCER
     Dosage: 250 MG QD PO
     Route: 048
     Dates: start: 20040322, end: 20040708
  3. PACLITAXEL [Suspect]
     Indication: NON-SMALL CELL LUNG CANCER
     Dosage: 45 MG X 4 WEEKLY IV
     Route: 042
     Dates: start: 20040322, end: 20040426
  4. VITAMIN E [Concomitant]
  5. ASPIRIN [Concomitant]
  6. VITAMIN C [Concomitant]
  7. MEGACE [Concomitant]

REACTIONS (1)
  - NEOPLASM PROGRESSION [None]
